FAERS Safety Report 7969306-3 (Version None)
Quarter: 2011Q4

REPORT INFORMATION
  Report Type: 
  Country: None (occurrence: None)
  Receive Date: 20111209
  Receipt Date: 20111201
  Transmission Date: 20120403
  Serious: Yes (Other)
  Sender: FDA-Public Use
  Company Number: US-ASTRAZENECA-2011SE73119

PATIENT
  Sex: Female

DRUGS (1)
  1. ENTOCORT EC [Suspect]
     Route: 048

REACTIONS (5)
  - HYPOAESTHESIA [None]
  - SKIN WRINKLING [None]
  - ABASIA [None]
  - OEDEMA PERIPHERAL [None]
  - JOINT SWELLING [None]
